FAERS Safety Report 5353152-3 (Version None)
Quarter: 2007Q2

REPORT INFORMATION
  Report Type: 
  Country: None (occurrence: None)
  Receive Date: 20070607
  Receipt Date: 20070523
  Transmission Date: 20071010
  Serious: Yes (Hospitalization)
  Sender: FDA-Public Use
  Company Number: CIP07000801

PATIENT
  Age: 76 Year
  Sex: Male

DRUGS (5)
  1. RISEDRONATE SODIUM [Suspect]
     Indication: OSTEOPOROSIS
     Dosage: SEE IMAGE
     Route: 048
     Dates: end: 20070316
  2. RISEDRONATE SODIUM [Suspect]
     Indication: OSTEOPOROSIS
     Dosage: SEE IMAGE
     Route: 048
     Dates: start: 20070323, end: 20070325
  3. RHEUMATREX [Suspect]
     Indication: MUSCULOSKELETAL PAIN
     Dosage: ORAL
     Route: 048
     Dates: end: 20070316
  4. LIPOVAS /00848101/ (SIMVASTATIN) [Suspect]
     Dosage: SEE IMAGE
     Route: 048
     Dates: end: 20070316
  5. LIPOVAS /00848101/ (SIMVASTATIN) [Suspect]
     Dosage: SEE IMAGE
     Route: 048
     Dates: start: 20070323, end: 20070325

REACTIONS (2)
  - HEPATIC FUNCTION ABNORMAL [None]
  - LYMPHOCYTE STIMULATION TEST POSITIVE [None]
